FAERS Safety Report 13805249 (Version 1)
Quarter: 2017Q3

REPORT INFORMATION
  Report Type: Spontaneous
  Country: US (occurrence: US)
  Receive Date: 20170728
  Receipt Date: 20170728
  Transmission Date: 20171127
  Serious: No
  Sender: FDA-Public Use
  Company Number: None

PATIENT
  Age: 83 Year
  Sex: Female

DRUGS (1)
  1. REVLIMID [Suspect]
     Active Substance: LENALIDOMIDE
     Indication: PLASMA CELL MYELOMA
     Dosage: FREQUENCY - QD MON TO FRI X 21DAYS
     Route: 048
     Dates: start: 20131205

REACTIONS (2)
  - Chromaturia [None]
  - Abdominal pain [None]

NARRATIVE: CASE EVENT DATE: 20170726
